FAERS Safety Report 7606391-2 (Version None)
Quarter: 2011Q3

REPORT INFORMATION
  Report Type: 
  Country: None (occurrence: None)
  Receive Date: 20110713
  Receipt Date: 20110707
  Transmission Date: 20111222
  Serious: Yes (Hospitalization, Disabling, Other)
  Sender: FDA-Public Use
  Company Number: US-PFIZER INC-2011087035

PATIENT
  Sex: Male

DRUGS (27)
  1. PROMETHAZINE HCL AND CODEINE [Concomitant]
     Indication: COUGH
     Dosage: UNK
     Dates: start: 20050101, end: 20080101
  2. ALBUTEROL SULFATE AUTOHALER [Concomitant]
     Indication: BRONCHIAL HYPERREACTIVITY
     Dosage: UNK
     Dates: start: 20050101, end: 20080101
  3. COMBIVENT [Concomitant]
     Indication: BRONCHIAL HYPERREACTIVITY
     Dosage: UNK
     Dates: start: 20060101, end: 20080101
  4. KLONOPIN [Concomitant]
     Indication: SLEEP DISORDER
  5. CLONAZEPAM [Concomitant]
     Indication: RESTLESS LEGS SYNDROME
  6. PROTONIX [Concomitant]
     Indication: GASTROOESOPHAGEAL REFLUX DISEASE
     Dosage: UNK
     Dates: start: 20060101, end: 20080101
  7. KLONOPIN [Concomitant]
     Indication: ANXIETY
     Dosage: UNK
     Dates: start: 20060101, end: 20090101
  8. CLONAZEPAM [Concomitant]
     Indication: ANXIETY
     Dosage: UNK
     Dates: start: 20060101, end: 20090101
  9. ALBUTEROL SULFATE AUTOHALER [Concomitant]
     Indication: CHRONIC OBSTRUCTIVE PULMONARY DISEASE
  10. VIBRAMYCIN [Concomitant]
     Indication: INFECTION
     Dosage: UNK
     Dates: start: 20060101, end: 20080101
  11. REMERON [Concomitant]
     Indication: BIPOLAR DISORDER
  12. IBUPROFEN [Concomitant]
     Indication: PAIN
     Dosage: UNK
     Dates: start: 20060101, end: 20080101
  13. PROVENTIL GENTLEHALER [Concomitant]
     Indication: CHRONIC OBSTRUCTIVE PULMONARY DISEASE
  14. CHANTIX [Suspect]
     Dosage: WITH STARTING PACK AND CONTINUING PACKS
     Dates: start: 20081112, end: 20081201
  15. CHANTIX [Suspect]
     Indication: SMOKING CESSATION THERAPY
     Dosage: STARTING PACK AND 2 CONTINUING PACKS
     Dates: start: 20070911, end: 20071101
  16. AMBIEN [Concomitant]
     Indication: SLEEP DISORDER
     Dosage: UNK
     Dates: start: 20050101, end: 20090101
  17. PROVENTIL GENTLEHALER [Concomitant]
     Indication: BRONCHIAL HYPERREACTIVITY
     Dosage: UNK
     Dates: start: 20060101, end: 20080101
  18. ATIVAN [Concomitant]
     Indication: ANXIETY
     Dosage: UNK
     Dates: start: 20060101, end: 20080101
  19. CLONAZEPAM [Concomitant]
     Indication: SLEEP DISORDER
  20. TRIMOX [Concomitant]
     Indication: INFECTION
     Dosage: UNK
     Dates: start: 20040101, end: 20080101
  21. CELEXA [Concomitant]
     Indication: DEPRESSION
     Dosage: UNK
     Dates: start: 20050101, end: 20090101
  22. KLONOPIN [Concomitant]
     Indication: RESTLESS LEGS SYNDROME
  23. ZYPREXA [Concomitant]
     Indication: BIPOLAR DISORDER
     Dosage: UNK
     Dates: start: 20060101, end: 20090101
  24. ZITHROMAX [Concomitant]
     Indication: INFECTION
     Dosage: UNK
     Dates: start: 20050101, end: 20090101
  25. CHANTIX [Suspect]
     Dosage: WITH STARTING PACK AND CONTINUING PACKS
     Dates: start: 20090101, end: 20090101
  26. COMBIVENT [Concomitant]
     Indication: CHRONIC OBSTRUCTIVE PULMONARY DISEASE
  27. REMERON [Concomitant]
     Indication: DEPRESSION
     Dosage: UNK
     Dates: start: 20060101, end: 20090101

REACTIONS (5)
  - SUICIDE ATTEMPT [None]
  - PANIC ATTACK [None]
  - DEPRESSION [None]
  - BIPOLAR DISORDER [None]
  - ANXIETY [None]
